FAERS Safety Report 13143365 (Version 1)
Quarter: 2017Q1

REPORT INFORMATION
  Report Type: Spontaneous
  Country: US (occurrence: US)
  Receive Date: 20170124
  Receipt Date: 20170124
  Transmission Date: 20170428
  Serious: Yes (Other)
  Sender: FDA-Public Use
  Company Number: None

PATIENT
  Age: 62 Year
  Sex: Male
  Weight: 63.11 kg

DRUGS (7)
  1. PATRIOT POWER GREENS [Concomitant]
  2. TURMERIC [Concomitant]
     Active Substance: TURMERIC
  3. VITAMIN B12 [Concomitant]
     Active Substance: CYANOCOBALAMIN
  4. D3 VITAMINS [Concomitant]
  5. ATORVASTATIN [Suspect]
     Active Substance: ATORVASTATIN
     Indication: BLOOD CHOLESTEROL INCREASED
     Dosage: ?          QUANTITY:ON 30;?ONCE AT BEDTIME BY MOUTH?
     Route: 048
     Dates: start: 20160914, end: 20161107
  6. MAGNESIUM [Concomitant]
     Active Substance: MAGNESIUM
  7. CQ10 [Concomitant]
     Active Substance: UBIDECARENONE

REACTIONS (3)
  - Libido decreased [None]
  - Haematospermia [None]
  - Erectile dysfunction [None]

NARRATIVE: CASE EVENT DATE: 20161107
